FAERS Safety Report 6058000-4 (Version None)
Quarter: 2009Q1

REPORT INFORMATION
  Report Type: 
  Country: None (occurrence: None)
  Receive Date: 20090129
  Receipt Date: 20090126
  Transmission Date: 20090719
  Serious: No
  Sender: FDA-Public Use
  Company Number: US-B.I. PHARMACEUTICALS,INC./RIDGEFIELD-2009-BP-00948BP

PATIENT
  Sex: Male

DRUGS (2)
  1. FLOMAX [Suspect]
     Indication: BLADDER CANCER
     Dosage: .4MG
     Route: 048
     Dates: start: 20090113
  2. FLOMAX [Suspect]
     Indication: DYSURIA

REACTIONS (1)
  - EPISTAXIS [None]
